FAERS Safety Report 9220917 (Version 1)
Quarter: 2013Q2

REPORT INFORMATION
  Report Type: Report from Study
  Country: JP (occurrence: JP)
  Receive Date: 20130409
  Receipt Date: 20130409
  Transmission Date: 20140414
  Serious: Yes (Hospitalization)
  Sender: FDA-Public Use
  Company Number: JP-GLAXOSMITHKLINE-B0866970A

PATIENT
  Age: 49 Year
  Sex: Male
  Weight: 53 kg

DRUGS (12)
  1. ARRANON [Suspect]
     Indication: T-CELL TYPE ACUTE LEUKAEMIA
     Dosage: 650MGM2 PER DAY
     Route: 042
     Dates: start: 20120802, end: 20120813
  2. ETOPOSIDE [Suspect]
     Indication: NEOPLASM MALIGNANT
     Route: 042
     Dates: start: 20120802, end: 20120806
  3. ENDOXAN [Suspect]
     Indication: NEOPLASM MALIGNANT
     Route: 042
     Dates: start: 20120802, end: 20120806
  4. BAKTAR [Concomitant]
     Indication: ANTIFUNGAL PROPHYLAXIS
     Dosage: .5IUAX PER DAY
     Route: 048
     Dates: start: 20120809, end: 20120813
  5. METHYCOBAL [Concomitant]
     Indication: NEUROPATHY PERIPHERAL
     Dosage: 1IUAX THREE TIMES PER DAY
     Route: 048
     Dates: start: 20120809, end: 20120813
  6. MUCOSTA [Concomitant]
     Dosage: 1IUAX THREE TIMES PER DAY
     Route: 048
     Dates: start: 20120809, end: 20120813
  7. POLYMIXIN B SULFATE [Concomitant]
     Dosage: 1IUAX THREE TIMES PER DAY
     Route: 048
     Dates: start: 20120809, end: 20120813
  8. GRACEPTOR [Concomitant]
     Indication: PROPHYLAXIS
     Dosage: 1IUAX PER DAY
     Route: 048
     Dates: start: 20120809, end: 20120812
  9. ITRIZOLE [Concomitant]
     Indication: INFECTION PROPHYLAXIS
     Dosage: 20ML PER DAY
     Route: 048
     Dates: start: 20120809, end: 20120813
  10. ALESION [Concomitant]
     Indication: PRURITUS
     Dosage: 1IUAX PER DAY
     Route: 048
     Dates: start: 20120809, end: 20120813
  11. RESTAMIN [Concomitant]
     Indication: PRURITUS
     Dosage: 50G PER DAY
     Route: 061
     Dates: start: 20120809, end: 20120809
  12. PROGRAF [Concomitant]
     Indication: PROPHYLAXIS
     Dosage: 1IUAX PER DAY
     Route: 048
     Dates: start: 20120813, end: 20120813

REACTIONS (4)
  - Bronchopulmonary aspergillosis [Recovering/Resolving]
  - Febrile neutropenia [Recovering/Resolving]
  - White blood cell count decreased [Recovering/Resolving]
  - Aphthous stomatitis [Recovering/Resolving]
